FAERS Safety Report 4993838-3 (Version None)
Quarter: 2006Q2

REPORT INFORMATION
  Report Type: 
  Country: None (occurrence: None)
  Receive Date: 20060503
  Receipt Date: 20060419
  Transmission Date: 20061013
  Serious: Yes (Life-Threatening, Hospitalization)
  Sender: FDA-Public Use
  Company Number: 2006RR-02039

PATIENT
  Age: 50 Year
  Sex: Female
  Weight: 71 kg

DRUGS (6)
  1. IBUPROFEN [Suspect]
     Indication: OSTEOARTHRITIS
     Dosage: ONE TAKEN, TID, ORAL
     Route: 048
     Dates: start: 20050203, end: 20060323
  2. XYLOPROCT [Concomitant]
  3. XYLOPROCT [Concomitant]
  4. GABAPENTIN [Concomitant]
  5. LEVOTHYROXINE SODIUM [Concomitant]
  6. AMOXICILLIN [Concomitant]

REACTIONS (1)
  - GASTROINTESTINAL HAEMORRHAGE [None]
